FAERS Safety Report 9948682 (Version 5)
Quarter: 2015Q1

REPORT INFORMATION
  Report Type: Report from Study
  Country: CA (occurrence: CA)
  Receive Date: 20140304
  Receipt Date: 20150227
  Transmission Date: 20150721
  Serious: Yes (Other)
  Sender: FDA-Public Use
  Company Number: CA-ROCHE-1294114

PATIENT
  Sex: Male
  Weight: 99.8 kg

DRUGS (14)
  1. METHYLPREDNISOLONE. [Concomitant]
     Active Substance: METHYLPREDNISOLONE
     Route: 042
     Dates: start: 20120425
  2. ACETAMINOPHEN. [Concomitant]
     Active Substance: ACETAMINOPHEN
     Route: 048
     Dates: start: 20121101
  3. DIPHENHYDRAMINE HCL [Concomitant]
     Active Substance: DIPHENHYDRAMINE HYDROCHLORIDE
     Route: 048
     Dates: start: 20121101
  4. ACETAMINOPHEN. [Concomitant]
     Active Substance: ACETAMINOPHEN
     Route: 048
     Dates: start: 20130529
  5. ALTACE [Concomitant]
     Active Substance: RAMIPRIL
  6. LEFLUNOMIDE. [Concomitant]
     Active Substance: LEFLUNOMIDE
     Route: 065
     Dates: start: 201306
  7. CITALOPRAM [Concomitant]
     Active Substance: CITALOPRAM HYDROBROMIDE
  8. ASA [Concomitant]
     Active Substance: ASPIRIN
     Dosage: LOW DOSE ASA
     Route: 065
  9. RITUXAN [Suspect]
     Active Substance: RITUXIMAB
     Indication: RHEUMATOID ARTHRITIS
     Route: 042
     Dates: start: 20120425
  10. RITUXAN [Suspect]
     Active Substance: RITUXIMAB
     Dosage: LAST RITUXIMAB INFUSION ON 20/OCT/2014.
     Route: 042
     Dates: start: 20131114
  11. METHOTREXATE [Concomitant]
     Active Substance: METHOTREXATE
     Indication: PRODUCT USED FOR UNKNOWN INDICATION
     Route: 065
     Dates: start: 2013
  12. NEXIUM [Concomitant]
     Active Substance: ESOMEPRAZOLE MAGNESIUM
  13. LIPITOR [Concomitant]
     Active Substance: ATORVASTATIN CALCIUM
  14. RISPERIDONE. [Concomitant]
     Active Substance: RISPERIDONE

REACTIONS (6)
  - Diverticulum [Not Recovered/Not Resolved]
  - Cough [Unknown]
  - Prostatic disorder [Not Recovered/Not Resolved]
  - Rheumatoid arthritis [Not Recovered/Not Resolved]
  - Malaise [Unknown]
  - Weight increased [Unknown]

NARRATIVE: CASE EVENT DATE: 2013
